FAERS Safety Report 15251689 (Version 4)
Quarter: 2019Q1

REPORT INFORMATION
  Report Type: Spontaneous
  Country: RO (occurrence: RO)
  Receive Date: 20180807
  Receipt Date: 20190225
  Transmission Date: 20190417
  Serious: Yes (Other)
  Sender: FDA-Public Use
  Company Number: RO-MYLANLABS-2018M1059526

PATIENT
  Age: 74 Year
  Sex: Male

DRUGS (5)
  1. PYRIDOSTIGMINE [Suspect]
     Active Substance: PYRIDOSTIGMINE
     Indication: MYASTHENIA GRAVIS
     Dosage: 60 MG, TID
  2. ROSUVASTATIN. [Suspect]
     Active Substance: ROSUVASTATIN
     Indication: BLOOD CHOLESTEROL INCREASED
     Dosage: 5 MILLIGRAM, QD
     Route: 048
  3. PYRIDOSTIGMINE [Suspect]
     Active Substance: PYRIDOSTIGMINE
     Dosage: 60 MILLIGRAM, QID
  4. NEOSTIGMINE                        /00045902/ [Suspect]
     Active Substance: NEOSTIGMINE BROMIDE
     Indication: MYASTHENIA GRAVIS
     Dosage: 15 MG, TID
  5. NEOSTIGMINE                        /00045902/ [Suspect]
     Active Substance: NEOSTIGMINE BROMIDE
     Dosage: 15 MILLIGRAM, QID

REACTIONS (9)
  - Myasthenia gravis [Recovering/Resolving]
  - Intentional product use issue [Unknown]
  - Abdominal pain upper [Unknown]
  - Intentional product misuse [Unknown]
  - Drug abuse [Unknown]
  - Intentional overdose [Unknown]
  - Cholinergic syndrome [Unknown]
  - Myopathy [Unknown]
  - Nausea [Unknown]

NARRATIVE: CASE EVENT DATE: 2018
